FAERS Safety Report 7504863-2 (Version None)
Quarter: 2011Q2

REPORT INFORMATION
  Report Type: 
  Country: None (occurrence: None)
  Receive Date: 20110526
  Receipt Date: 20110513
  Transmission Date: 20111010
  Serious: Yes (Other)
  Sender: FDA-Public Use
  Company Number: BR-AMGEN-BRASP2010008652

PATIENT
  Age: 29 Year
  Sex: Female
  Weight: 94 kg

DRUGS (9)
  1. ENBREL [Suspect]
     Dosage: 50 MG, QWK
     Route: 058
     Dates: start: 20100721
  2. DIPIRONA                           /06276701/ [Concomitant]
     Dosage: UNK
  3. ENBREL [Suspect]
     Dosage: 25 MG, 2 TIMES/WK
     Route: 058
     Dates: start: 20101118
  4. FOLIC ACID [Concomitant]
     Dosage: UNK
  5. IBUPROFEN [Concomitant]
     Indication: PAIN
     Dosage: 300 MG, AS NEEDED
  6. METHOTREXATE [Concomitant]
     Indication: PRODUCT USED FOR UNKNOWN INDICATION
     Dosage: 4 TABLETS EVERY 15 DAYS
  7. CHLOROQUINE HYDROCHLORIDE [Concomitant]
     Indication: PRODUCT USED FOR UNKNOWN INDICATION
     Dosage: 250 MG, 1X/DAY
  8. ENBREL [Suspect]
     Indication: RHEUMATOID ARTHRITIS
     Dosage: UNK
     Route: 058
     Dates: start: 20100801, end: 20100101
  9. PREDNISONE [Concomitant]
     Indication: PAIN
     Dosage: 5 MG, AS NEEDED

REACTIONS (5)
  - INJECTION SITE SWELLING [None]
  - MENSTRUATION DELAYED [None]
  - INJECTION SITE ERYTHEMA [None]
  - MENORRHAGIA [None]
  - INJECTION SITE PRURITUS [None]
